FAERS Safety Report 4480584-8 (Version None)
Quarter: 2004Q4

REPORT INFORMATION
  Report Type: 
  Country: None (occurrence: None)
  Receive Date: 20041019
  Receipt Date: 20041012
  Transmission Date: 20050328
  Serious: Yes (Other)
  Sender: FDA-Public Use
  Company Number: 2004238309SE

PATIENT
  Sex: Male

DRUGS (1)
  1. DETRUSITOL SR (TOLTERODINE) CAPSULE, PROLONGED RELEASE [Suspect]
     Dosage: ORAL
     Route: 048

REACTIONS (1)
  - VENTRICULAR TACHYCARDIA [None]
